FAERS Safety Report 25175750 (Version 1)
Quarter: 2025Q2

REPORT INFORMATION
  Report Type: Spontaneous
  Country: US (occurrence: US)
  Receive Date: 20250408
  Receipt Date: 20250408
  Transmission Date: 20250717
  Serious: Yes (Other)
  Sender: BRISTOL MYERS SQUIBB
  Company Number: US-BRISTOL-MYERS SQUIBB COMPANY-2025-047953

PATIENT
  Age: 75 Year
  Sex: Female

DRUGS (12)
  1. REVLIMID [Suspect]
     Active Substance: LENALIDOMIDE
     Indication: Diffuse large B-cell lymphoma
  2. CARVEDILOL [Concomitant]
     Active Substance: CARVEDILOL
  3. CLOPIDOGREL [Concomitant]
     Active Substance: CLOPIDOGREL BISULFATE
  4. ENTRESTO [Concomitant]
     Active Substance: SACUBITRIL\VALSARTAN
  5. EZETIMIBE [Concomitant]
     Active Substance: EZETIMIBE
  6. FOLIC ACID [Concomitant]
     Active Substance: FOLIC ACID
  7. GABAPENTIN [Concomitant]
     Active Substance: GABAPENTIN
  8. IMBRUVICA [Concomitant]
     Active Substance: IBRUTINIB
     Indication: Diffuse large B-cell lymphoma
  9. RITUXAN [Concomitant]
     Active Substance: RITUXIMAB
     Indication: Diffuse large B-cell lymphoma
  10. CHOLECALCIFEROL [Concomitant]
     Active Substance: CHOLECALCIFEROL
  11. ATORVASTATIN [Concomitant]
     Active Substance: ATORVASTATIN
  12. FLUTICASONE [Concomitant]
     Active Substance: FLUTICASONE

REACTIONS (3)
  - Full blood count decreased [Unknown]
  - Pneumonia [Unknown]
  - Off label use [Unknown]
